FAERS Safety Report 18209499 (Version 1)
Quarter: 2020Q3

REPORT INFORMATION
  Report Type: Spontaneous
  Country: US (occurrence: US)
  Receive Date: 20200828
  Receipt Date: 20200828
  Transmission Date: 20201103
  Serious: No
  Sender: FDA-Public Use
  Company Number: US-BAYER-2020-180566

PATIENT
  Sex: Female

DRUGS (27)
  1. MIRALAX [Concomitant]
     Active Substance: POLYETHYLENE GLYCOL 3350
  2. ALBERTSONS SINUS [Concomitant]
  3. HYDROCODONE BITARTRATE AND ACETAMINOPHEN [Concomitant]
     Active Substance: ACETAMINOPHEN\HYDROCODONE BITARTRATE
  4. XANAX [Concomitant]
     Active Substance: ALPRAZOLAM
  5. WELLBUTRIN [Concomitant]
     Active Substance: BUPROPION HYDROCHLORIDE
  6. GABAPENTIN EQL [Concomitant]
  7. BUPIVACAINE. [Concomitant]
     Active Substance: BUPIVACAINE
  8. AMITRIPTYLINE [Concomitant]
     Active Substance: AMITRIPTYLINE
  9. BISACODYL. [Concomitant]
     Active Substance: BISACODYL
  10. POTASSIUM GLUCONATE [Concomitant]
     Active Substance: POTASSIUM GLUCONATE
  11. MAALOX [ALUMINIUM HYDROXIDE;MAGNESIUM HYDROXIDE] [Concomitant]
  12. LEVEMIR [Concomitant]
     Active Substance: INSULIN DETEMIR
  13. INSULIN REGULAR HM [Concomitant]
     Active Substance: INSULIN NOS
  14. CRESTOR [Concomitant]
     Active Substance: ROSUVASTATIN CALCIUM
  15. METFORMIN [Concomitant]
     Active Substance: METFORMIN HYDROCHLORIDE
  16. ZETIA [Concomitant]
     Active Substance: EZETIMIBE
  17. FLEXERIL [CEFIXIME] [Concomitant]
     Active Substance: CEFIXIME
  18. MORPHINE [Concomitant]
     Active Substance: MORPHINE
  19. LISINOPRIL. [Concomitant]
     Active Substance: LISINOPRIL
  20. PHENTERMINE. [Concomitant]
     Active Substance: PHENTERMINE
  21. NORVASC [Concomitant]
     Active Substance: AMLODIPINE BESYLATE
  22. OXYCODONE AND ACETAMINOPHEN [Concomitant]
     Active Substance: ACETAMINOPHEN\OXYCODONE HYDROCHLORIDE
  23. PRILOSEC [Concomitant]
     Active Substance: OMEPRAZOLE MAGNESIUM
  24. CLARITIN [Suspect]
     Active Substance: LORATADINE
     Dosage: UNK
  25. LYRICA [Concomitant]
     Active Substance: PREGABALIN
  26. TOPAMAX [Concomitant]
     Active Substance: TOPIRAMATE
  27. ZOFRAN ODT [Concomitant]
     Active Substance: ONDANSETRON HYDROCHLORIDE

REACTIONS (7)
  - Hyperhidrosis [Unknown]
  - Abdominal pain [Unknown]
  - Asthenia [Unknown]
  - Vomiting [Unknown]
  - Pain [None]
  - Constipation [Unknown]
  - Disorientation [Unknown]
